FAERS Safety Report 21598346 (Version 1)
Quarter: 2022Q4

REPORT INFORMATION
  Report Type: Report from Study
  Country: US (occurrence: US)
  Receive Date: 20221115
  Receipt Date: 20221115
  Transmission Date: 20230112
  Serious: Yes (Other)
  Sender: FDA-Public Use
  Company Number: US-BRISTOL-MYERS SQUIBB COMPANY-2022-106909

PATIENT
  Age: 68 Year
  Sex: Male
  Weight: 77.110 kg

DRUGS (23)
  1. POMALYST [Suspect]
     Active Substance: POMALIDOMIDE
     Indication: Plasma cell myeloma
     Dosage: FREQUENCY: DAILY FOR 21 DAYS?ONGOING
     Route: 048
  2. POMALYST [Suspect]
     Active Substance: POMALIDOMIDE
     Dosage: FREQUENCY: DAILY FOR 21 DAYS?ONGOING
     Route: 048
  3. POMALYST [Suspect]
     Active Substance: POMALIDOMIDE
     Route: 048
  4. DEXAMETHASONE [Suspect]
     Active Substance: DEXAMETHASONE
     Indication: Product used for unknown indication
     Route: 065
  5. CYCLOBENZAPRINE HYDROCHLORIDE [Concomitant]
     Active Substance: CYCLOBENZAPRINE HYDROCHLORIDE
     Indication: Product used for unknown indication
     Route: 065
  6. DARZALEX [Concomitant]
     Active Substance: DARATUMUMAB
     Indication: Product used for unknown indication
     Dosage: 400MG/2,
     Route: 065
  7. ACETAMINOPHEN\HYDROCODONE [Concomitant]
     Active Substance: ACETAMINOPHEN\HYDROCODONE
     Indication: Product used for unknown indication
     Dosage: 5 MG-32
     Route: 065
  8. LISINOPRIL [Concomitant]
     Active Substance: LISINOPRIL
     Indication: Product used for unknown indication
     Dosage: 5 MG-32
     Route: 065
  9. PRILOSEC [Concomitant]
     Active Substance: OMEPRAZOLE MAGNESIUM
     Indication: Product used for unknown indication
     Dosage: 0.2 %,
     Route: 065
  10. TYLENOL [Concomitant]
     Active Substance: ACETAMINOPHEN
     Indication: Product used for unknown indication
     Dosage: 0.2 %,
     Route: 065
  11. SUPRIM [SULFAMETHOXAZOLE;TRIMETHOPRIM] [Concomitant]
     Indication: Product used for unknown indication
     Dosage: 0.2 %,
     Route: 065
  12. ZYRTEC [Concomitant]
     Active Substance: CETIRIZINE HYDROCHLORIDE
     Indication: Product used for unknown indication
     Dosage: 0.2 %,
     Route: 065
  13. TESTOSTERONE [Concomitant]
     Active Substance: TESTOSTERONE
     Indication: Product used for unknown indication
     Dosage: 20.25/1 ,
     Route: 065
  14. PREGABALIN [Concomitant]
     Active Substance: PREGABALIN
     Indication: Product used for unknown indication
     Dosage: 20.25/1 ,
     Route: 065
  15. DIAZEPAM [Concomitant]
     Active Substance: DIAZEPAM
     Indication: Product used for unknown indication
     Route: 065
  16. DIAZEPAM [Concomitant]
     Active Substance: DIAZEPAM
     Indication: Product used for unknown indication
     Route: 065
  17. AMOXICILLIN [Concomitant]
     Active Substance: AMOXICILLIN
     Indication: Product used for unknown indication
     Route: 065
  18. CEPHALEXIN MONOHYDRATE [Concomitant]
     Active Substance: CEPHALEXIN MONOHYDRATE
     Indication: Product used for unknown indication
     Route: 065
  19. DULOXETINE HYDROCHLORIDE [Concomitant]
     Active Substance: DULOXETINE HYDROCHLORIDE
     Indication: Product used for unknown indication
     Route: 065
  20. SILODOSIN [Concomitant]
     Active Substance: SILODOSIN
     Indication: Product used for unknown indication
     Route: 065
  21. JARDIANCE [Concomitant]
     Active Substance: EMPAGLIFLOZIN
     Indication: Product used for unknown indication
     Route: 065
  22. GLIPIZIDE [Concomitant]
     Active Substance: GLIPIZIDE
     Indication: Product used for unknown indication
     Route: 065
  23. METFORMIN HYDROCHLORIDE [Concomitant]
     Active Substance: METFORMIN HYDROCHLORIDE
     Indication: Product used for unknown indication
     Route: 065

REACTIONS (11)
  - Neuropathy peripheral [Unknown]
  - Osteonecrosis [Unknown]
  - Urinary tract infection [Recovered/Resolved]
  - Neutrophil count decreased [Unknown]
  - Hiccups [Unknown]
  - Resorption bone increased [Unknown]
  - Hypersensitivity [Unknown]
  - Back pain [Unknown]
  - Dizziness [Unknown]
  - Degenerative bone disease [Unknown]
  - Arthralgia [Unknown]

NARRATIVE: CASE EVENT DATE: 20220101
